FAERS Safety Report 20345944 (Version 2)
Quarter: 2022Q1

REPORT INFORMATION
  Report Type: Spontaneous
  Country: US (occurrence: US)
  Receive Date: 20220118
  Receipt Date: 20220128
  Transmission Date: 20220423
  Serious: Yes (Other)
  Sender: FDA-Public Use
  Company Number: US-PFIZER INC-2021008127

PATIENT
  Age: 79 Year
  Sex: Female

DRUGS (1)
  1. EUCRISA [Suspect]
     Active Substance: CRISABOROLE
     Dosage: UNK, 2X/DAY (APPLY TWICE DAILY TO GENITALIA AREA)

REACTIONS (3)
  - Neovascular age-related macular degeneration [Unknown]
  - Blindness unilateral [Unknown]
  - Skin lesion [Unknown]
